FAERS Safety Report 24392465 (Version 1)
Quarter: 2024Q4

REPORT INFORMATION
  Report Type: Spontaneous
  Country: US (occurrence: None)
  Receive Date: 20241002
  Receipt Date: 20241002
  Transmission Date: 20250114
  Serious: No
  Sender: Public
  Company Number: None

PATIENT
  Sex: Male
  Weight: 80.29 kg

DRUGS (3)
  1. OPDIVO [Suspect]
     Active Substance: NIVOLUMAB
     Indication: Drug therapy
     Dosage: OTHER QUANTITY : IMMUNO THERAPY;?FREQUENCY : MONTHLY;?
     Route: 042
     Dates: start: 20210315
  2. OPDIVO [Suspect]
     Active Substance: NIVOLUMAB
     Indication: Blister
  3. PREDNISONE [Suspect]
     Active Substance: PREDNISONE

REACTIONS (3)
  - Product communication issue [None]
  - Spinal fracture [None]
  - Tooth loss [None]
